FAERS Safety Report 10166453 (Version 2)
Quarter: 2014Q2

REPORT INFORMATION
  Report Type: Spontaneous
  Country: US (occurrence: US)
  Receive Date: 20140512
  Receipt Date: 20140602
  Transmission Date: 20141212
  Serious: Yes (Hospitalization)
  Sender: FDA-Public Use
  Company Number: US-BAYER-2014-068416

PATIENT
  Age: 27 Year
  Sex: Female

DRUGS (6)
  1. YASMIN [Suspect]
     Dosage: UNK
     Dates: start: 20070101, end: 20101101
  2. YAZ [Suspect]
     Dosage: UNK
     Dates: start: 20070101, end: 20101101
  3. OCELLA [Suspect]
     Dosage: UNK
     Dates: start: 20070101, end: 20101101
  4. BEYAZ [Suspect]
     Dosage: UNK
     Dates: start: 20070101, end: 20101101
  5. GIANVI [Suspect]
     Dosage: UNK
     Dates: start: 20070101, end: 20101101
  6. SAFYRAL [Suspect]
     Dosage: UNK
     Dates: start: 20070101, end: 20101101

REACTIONS (2)
  - Pulmonary embolism [None]
  - Injury [None]
